FAERS Safety Report 13737857 (Version 1)
Quarter: 2017Q3

REPORT INFORMATION
  Report Type: Spontaneous
  Country: US (occurrence: US)
  Receive Date: 20170710
  Receipt Date: 20170710
  Transmission Date: 20171127
  Serious: Yes (Other)
  Sender: FDA-Public Use
  Company Number: US-SAOL THERAPEUTICS-2016SAO00052

PATIENT
  Age: 54 Year
  Sex: Male

DRUGS (3)
  1. MORPHINE [Suspect]
     Active Substance: MORPHINE
     Indication: PAIN
     Dosage: 2.42 MG, \DAY
     Route: 037
  2. BUPIVACAINE. [Suspect]
     Active Substance: BUPIVACAINE
     Indication: PAIN
     Dosage: 2.833 MG, \DAY
     Route: 037
  3. COMPOUNDED BACLOFEN [Suspect]
     Active Substance: BACLOFEN
     Indication: PAIN
     Dosage: 129.55 ?G, \DAY
     Route: 037

REACTIONS (6)
  - Nausea [Unknown]
  - Palpitations [Unknown]
  - Drug withdrawal syndrome [Unknown]
  - Device infusion issue [Unknown]
  - Hyperhidrosis [Unknown]
  - Off label use [Unknown]

NARRATIVE: CASE EVENT DATE: 20160405
